FAERS Safety Report 5740659-X (Version None)
Quarter: 2008Q2

REPORT INFORMATION
  Report Type: 
  Country: None (occurrence: None)
  Receive Date: 20080516
  Receipt Date: 20080515
  Transmission Date: 20081010
  Serious: Yes (Other)
  Sender: FDA-Public Use
  Company Number: D0056758A

PATIENT
  Age: 80 Year
  Sex: Female
  Weight: 74 kg

DRUGS (4)
  1. AVANDIA [Suspect]
     Dosage: 4MG PER DAY
     Route: 048
     Dates: start: 20001127, end: 20080229
  2. NIFEHEXAL [Concomitant]
     Indication: HYPERTENSION
     Dosage: 30MG PER DAY
     Route: 065
     Dates: start: 20050415
  3. METFORMIN HCL [Concomitant]
     Dosage: 1000MG TWICE PER DAY
     Route: 048
     Dates: start: 20050415
  4. SIMVASTATIN [Concomitant]
     Dosage: 20MG PER DAY
     Route: 048
     Dates: start: 20050415

REACTIONS (7)
  - BLOOD GLUCOSE INCREASED [None]
  - CARDIAC FAILURE [None]
  - DEPRESSED MOOD [None]
  - EXERCISE TOLERANCE DECREASED [None]
  - GLYCOSYLATED HAEMOGLOBIN INCREASED [None]
  - HYPERTENSION [None]
  - NAUSEA [None]
